FAERS Safety Report 5408756-6 (Version None)
Quarter: 2007Q3

REPORT INFORMATION
  Report Type: 
  Country: None (occurrence: None)
  Receive Date: 20070808
  Receipt Date: 20070801
  Transmission Date: 20080115
  Serious: Yes (Hospitalization)
  Sender: FDA-Public Use
  Company Number: B0482404A

PATIENT
  Age: 22 Year
  Sex: Female

DRUGS (7)
  1. QUILONORM [Suspect]
     Indication: DRUG USE FOR UNKNOWN INDICATION
     Route: 048
     Dates: start: 20060117, end: 20060130
  2. VENLAFAXINE HCL [Suspect]
     Indication: DRUG USE FOR UNKNOWN INDICATION
     Route: 048
     Dates: start: 20051001, end: 20060124
  3. MIRTAZAPINE [Suspect]
     Indication: DRUG USE FOR UNKNOWN INDICATION
     Route: 048
     Dates: start: 20051205, end: 20060201
  4. ZYPREXA [Suspect]
     Indication: DRUG USE FOR UNKNOWN INDICATION
     Dosage: 10MG PER DAY
     Route: 048
     Dates: start: 20051226
  5. DEPAKENE [Concomitant]
     Dosage: 600MG PER DAY
     Route: 048
     Dates: start: 20051201
  6. ALNA RETARD [Concomitant]
  7. EDRONAX [Concomitant]

REACTIONS (1)
  - URINARY RETENTION [None]
